FAERS Safety Report 17228196 (Version 1)
Quarter: 2020Q3

REPORT INFORMATION
  Report Type: Report from Study
  Country: ES (occurrence: ES)
  Receive Date: 20200103
  Receipt Date: 20200103
  Transmission Date: 20201105
  Serious: Yes (Hospitalization)
  Sender: FDA-Public Use
  Company Number: ES-ROCHE-2326976

PATIENT
  Age: 63 Year
  Sex: Female

DRUGS (7)
  1. BENDAMUSTINE [Suspect]
     Active Substance: BENDAMUSTINE
     Indication: DIFFUSE LARGE B-CELL LYMPHOMA
     Dosage: 120 MG FOR 2 DAYS?ON 10/JUL/2019, MOST RECENT DOSE
     Route: 042
     Dates: start: 20190523
  2. POLATUZUMAB VEDOTIN. [Suspect]
     Active Substance: POLATUZUMAB VEDOTIN
     Indication: DIFFUSE LARGE B-CELL LYMPHOMA
     Dosage: ON 07/AUG/2019, MOST RECENT DOSE
     Route: 042
     Dates: start: 20190523
  3. RANITIDINE. [Concomitant]
     Active Substance: RANITIDINE
  4. ACICLOVIR [Concomitant]
     Active Substance: ACYCLOVIR
     Route: 048
  5. SERC [BETAHISTINE HYDROCHLORIDE] [Concomitant]
  6. PRITOR [TELMISARTAN] [Concomitant]
     Indication: HYPERTENSION
     Route: 048
  7. RITUXIMAB. [Suspect]
     Active Substance: RITUXIMAB
     Indication: DIFFUSE LARGE B-CELL LYMPHOMA
     Route: 042
     Dates: start: 20190523, end: 20190807

REACTIONS (5)
  - Febrile neutropenia [Recovered/Resolved]
  - Thrombocytopenia [Not Recovered/Not Resolved]
  - Pruritus [Recovered/Resolved]
  - Staphylococcal infection [Recovered/Resolved]
  - Erythema [Recovered/Resolved]

NARRATIVE: CASE EVENT DATE: 20190831
